FAERS Safety Report 17175235 (Version 1)
Quarter: 2019Q4

REPORT INFORMATION
  Report Type: Spontaneous
  Country: IT (occurrence: IT)
  Receive Date: 20191219
  Receipt Date: 20191219
  Transmission Date: 20200122
  Serious: Yes (Other)
  Sender: FDA-Public Use
  Company Number: IT-TAKEDA-2019TUS072331

PATIENT
  Age: 67 Year
  Sex: Female

DRUGS (1)
  1. BRINTELLIX [Suspect]
     Active Substance: VORTIOXETINE HYDROBROMIDE
     Indication: DEPRESSION
     Dosage: UNK
     Route: 065

REACTIONS (11)
  - Suicidal ideation [Not Recovered/Not Resolved]
  - Crying [Unknown]
  - Malaise [Recovering/Resolving]
  - Prescription drug used without a prescription [Unknown]
  - Decreased appetite [Unknown]
  - Nausea [Unknown]
  - Fear of death [Unknown]
  - Nervousness [Unknown]
  - Paranoia [Not Recovered/Not Resolved]
  - Vomiting [Unknown]
  - Morbid thoughts [Unknown]
